FAERS Safety Report 9214046 (Version 1)
Quarter: 2013Q2

REPORT INFORMATION
  Report Type: Spontaneous
  Country: US (occurrence: None)
  Receive Date: 20130404
  Receipt Date: 20130404
  Transmission Date: 20140414
  Serious: Yes (Hospitalization)
  Sender: FDA-Public Use
  Company Number: None

PATIENT
  Age: 69 Year
  Sex: Male

DRUGS (1)
  1. SUTENT [Suspect]
     Dosage: QD FOR 4 WEEKS, THEN 2 WEEKS
     Route: 048
     Dates: start: 20130314, end: 20130328

REACTIONS (2)
  - Jaundice [None]
  - Dehydration [None]
